FAERS Safety Report 8499524-X (Version None)
Quarter: 2012Q2

REPORT INFORMATION
  Report Type: 
  Country: None (occurrence: None)
  Receive Date: 20120629
  Receipt Date: 20120618
  Transmission Date: 20120825
  Serious: Yes (Other)
  Sender: FDA-Public Use
  Company Number: FK201201730

PATIENT
  Age: 60 Year
  Sex: Female

DRUGS (3)
  1. PACLITAXEL [Suspect]
     Indication: FALLOPIAN TUBE CANCER
     Dosage: , 6 CONSECUTIVE COURSES,
  2. CARBOPLATIN [Suspect]
     Indication: FALLOPIAN TUBE CANCER
     Dosage: , 6 CONSECUTIVE COURSES,
  3. DEXAMETHASONE [Suspect]
     Indication: PREMEDICATION
     Dosage: 40 MG, NIGHT PRECEDING CHEMOTHERAPY, ORAL, 20 MG, NIGHT PRECEDING CHEMOTHERAPY, INTRAVENOUS (NOT OTH
     Route: 048

REACTIONS (7)
  - HYPERHIDROSIS [None]
  - HEART RATE INCREASED [None]
  - ORTHOSTATIC HYPOTENSION [None]
  - ARTHRALGIA [None]
  - FLUSHING [None]
  - ABDOMINAL PAIN [None]
  - MYALGIA [None]
